FAERS Safety Report 6179586-5 (Version None)
Quarter: 2009Q2

REPORT INFORMATION
  Report Type: 
  Country: None (occurrence: None)
  Receive Date: 20090505
  Receipt Date: 20090424
  Transmission Date: 20091009
  Serious: Yes (Hospitalization)
  Sender: FDA-Public Use
  Company Number: CA-ELI_LILLY_AND_COMPANY-CA200904006636

PATIENT
  Age: 30 Year
  Sex: Female

DRUGS (8)
  1. FORTEO [Suspect]
     Indication: OSTEOPOROSIS
     Dosage: 20 UG, DAILY (1/D)
     Route: 058
     Dates: start: 20090404
  2. SYNTHROID [Concomitant]
  3. YASMIN [Concomitant]
  4. VITAMIN B COMPLEX CAP [Concomitant]
  5. MULTI-VITAMIN [Concomitant]
  6. VITAMIN D [Concomitant]
  7. LOVAZA [Concomitant]
  8. LACTULOSE [Concomitant]

REACTIONS (14)
  - ABDOMINAL DISCOMFORT [None]
  - ABDOMINAL DISTENSION [None]
  - BLOOD CALCIUM INCREASED [None]
  - BLOOD SODIUM DECREASED [None]
  - CONDITION AGGRAVATED [None]
  - CONSTIPATION [None]
  - DIARRHOEA [None]
  - DIZZINESS [None]
  - DRUG ADMINISTRATION ERROR [None]
  - FATIGUE [None]
  - HYPONATRAEMIA [None]
  - INTESTINAL OBSTRUCTION [None]
  - IRRITABLE BOWEL SYNDROME [None]
  - NAUSEA [None]
